FAERS Safety Report 9096763 (Version 1)
Quarter: 2013Q1

REPORT INFORMATION
  Report Type: Spontaneous
  Country: SN (occurrence: None)
  Receive Date: 20130123
  Receipt Date: 20130123
  Transmission Date: 20140127
  Serious: Yes (Life-Threatening)
  Sender: FDA-Public Use
  Company Number: ALB-013-12-SE

PATIENT
  Age: 81 Year
  Sex: Male

DRUGS (11)
  1. ALBUNORM [Suspect]
     Indication: HYPOTENSION
     Dosage: 120 ML INTRAVENOUS (NOT OTHERWISE SPECIFIED)
     Route: 042
     Dates: start: 20120816, end: 20120816
  2. NAROP [Suspect]
     Indication: SURGERY
     Dates: start: 20120816, end: 20120816
  3. PREDNISOLONE [Concomitant]
  4. SIMVASTATIN [Concomitant]
  5. CALCIUM CARBONATE [Concomitant]
  6. COLECALCIFEROL [Concomitant]
  7. ROCURONIUM [Concomitant]
  8. PROPOFOL [Concomitant]
  9. ATROPINE [Concomitant]
  10. ALFENTANIL [Concomitant]
  11. REMIFENTANIL [Concomitant]

REACTIONS (3)
  - Hypotension [None]
  - Anaphylactic shock [None]
  - Rash [None]
